FAERS Safety Report 6644769-4 (Version None)
Quarter: 2010Q1

REPORT INFORMATION
  Report Type: 
  Country: None (occurrence: None)
  Receive Date: 20100322
  Receipt Date: 20100315
  Transmission Date: 20100710
  Serious: Yes (Hospitalization)
  Sender: FDA-Public Use
  Company Number: FR-SANOFI-AVENTIS-2010SA014536

PATIENT
  Age: 61 Year
  Sex: Male

DRUGS (6)
  1. PLAVIX [Suspect]
     Indication: DRUG USE FOR UNKNOWN INDICATION
     Route: 048
     Dates: end: 20100201
  2. MABTHERA [Suspect]
     Route: 042
     Dates: start: 20091101, end: 20100128
  3. ARACYTINE [Suspect]
     Route: 042
     Dates: start: 20100128, end: 20100128
  4. CARBOPLATIN [Suspect]
     Route: 042
     Dates: start: 20100127, end: 20100127
  5. DEXAMETHASONE [Suspect]
     Route: 042
     Dates: start: 20100127, end: 20100130
  6. TAHOR [Suspect]
     Indication: DRUG USE FOR UNKNOWN INDICATION
     Route: 048
     Dates: end: 20100201

REACTIONS (6)
  - ABDOMINAL PAIN [None]
  - CONFUSIONAL STATE [None]
  - CYTOLYTIC HEPATITIS [None]
  - HYPONATRAEMIA [None]
  - MENINGOENCEPHALITIS HERPETIC [None]
  - PYREXIA [None]
